FAERS Safety Report 19937545 (Version 2)
Quarter: 2021Q4

REPORT INFORMATION
  Report Type: Other
  Country: GB (occurrence: GB)
  Receive Date: 20211011
  Receipt Date: 20211103
  Transmission Date: 20220304
  Serious: Yes (Disabling, Other)
  Sender: FDA-Public Use
  Company Number: None

PATIENT

DRUGS (3)
  1. IBUPROFEN [Interacting]
     Active Substance: IBUPROFEN
     Indication: Pain
     Dosage: 2 DOSAGE FORM, UNK (2 TABLETS)
     Route: 048
     Dates: start: 20210916, end: 20210916
  2. DICLOFENAC SODIUM [Interacting]
     Active Substance: DICLOFENAC SODIUM
     Indication: Pain
     Dosage: 75 MILLIGRAM, UNK
     Route: 048
     Dates: start: 20210916
  3. DICLOFENAC SODIUM [Interacting]
     Active Substance: DICLOFENAC SODIUM
     Indication: Toothache

REACTIONS (9)
  - Dry throat [Unknown]
  - Paraesthesia [Unknown]
  - Vision blurred [Recovered/Resolved]
  - Blindness transient [Recovered/Resolved]
  - Swelling [Unknown]
  - Pruritus [Unknown]
  - Fatigue [Unknown]
  - Urticaria [Unknown]
  - Drug interaction [Unknown]

NARRATIVE: CASE EVENT DATE: 20210916
